FAERS Safety Report 7890514-4 (Version None)
Quarter: 2011Q4

REPORT INFORMATION
  Report Type: 
  Country: None (occurrence: None)
  Receive Date: 20111103
  Receipt Date: 20110720
  Transmission Date: 20120403
  Serious: No
  Sender: FDA-Public Use
  Company Number: US-AMGEN-USASP2011036887

PATIENT
  Age: 59 Year
  Sex: Female

DRUGS (1)
  1. ENBREL [Suspect]
     Indication: RHEUMATOID ARTHRITIS
     Dosage: 50 MG, QWK
     Dates: start: 20030122, end: 20100801

REACTIONS (4)
  - INSOMNIA [None]
  - RHEUMATOID NODULE [None]
  - LOCALISED INFECTION [None]
  - RHEUMATOID ARTHRITIS [None]
